FAERS Safety Report 24405527 (Version 4)
Quarter: 2025Q1

REPORT INFORMATION
  Report Type: Report from Study
  Country: US (occurrence: US)
  Receive Date: 20241007
  Receipt Date: 20250310
  Transmission Date: 20250409
  Serious: Yes (Other)
  Sender: TAKEDA
  Company Number: US-TAKEDA-2024TUS097788

PATIENT
  Sex: Male

DRUGS (2)
  1. VON WILLEBRAND FACTOR (RECOMBINANT) [Suspect]
     Active Substance: VON WILLEBRAND FACTOR (RECOMBINANT)
     Indication: Coagulopathy
     Dosage: UNK UNK, QD
  2. VON WILLEBRAND FACTOR (RECOMBINANT) [Suspect]
     Active Substance: VON WILLEBRAND FACTOR (RECOMBINANT)
     Indication: Haemophilia

REACTIONS (3)
  - Gastrointestinal haemorrhage [Unknown]
  - Product use issue [Unknown]
  - Gastrointestinal disorder [Unknown]
